FAERS Safety Report 6153914-9 (Version None)
Quarter: 2009Q2

REPORT INFORMATION
  Report Type: 
  Country: None (occurrence: None)
  Receive Date: 20090414
  Receipt Date: 20070618
  Transmission Date: 20091009
  Serious: Yes (Hospitalization)
  Sender: FDA-Public Use
  Company Number: US-ASTRAZENECA-2006UW23510

PATIENT
  Age: 527 Month
  Sex: Female
  Weight: 77.1 kg

DRUGS (22)
  1. SEROQUEL [Suspect]
     Indication: BIPOLAR DISORDER
     Route: 048
     Dates: start: 20020101
  2. SEROQUEL [Suspect]
     Indication: OBSESSIVE-COMPULSIVE DISORDER
     Route: 048
     Dates: start: 20020101
  3. SEROQUEL [Suspect]
     Dosage: 25 - 300 MG
     Route: 048
  4. SEROQUEL [Suspect]
     Dosage: 25 - 300 MG
     Route: 048
  5. GEODON [Concomitant]
  6. RISPERDAL [Concomitant]
  7. ZYPREXA [Concomitant]
     Dates: start: 20000726
  8. METFORMIN HCL [Concomitant]
  9. OMACOR [Concomitant]
  10. PRILOSEC [Concomitant]
  11. HYDROCHLOROTHIAZIDE [Concomitant]
  12. BIOTIN [Concomitant]
  13. LIPITOR [Concomitant]
  14. XANAX [Concomitant]
  15. TRICOR [Concomitant]
  16. INDERAL [Concomitant]
  17. ASPIRIN [Concomitant]
  18. LEXAPRO [Concomitant]
  19. ANTIVERT [Concomitant]
  20. PHENAZOPYRIDINE HCL TAB [Concomitant]
  21. WELLBUTRIN [Concomitant]
  22. TOPAMAX [Concomitant]

REACTIONS (15)
  - ABDOMINAL PAIN [None]
  - BACK PAIN [None]
  - BIPOLAR DISORDER [None]
  - BLOOD CHOLESTEROL INCREASED [None]
  - CHOLECYSTITIS CHRONIC [None]
  - DEPRESSION [None]
  - DIABETES MELLITUS [None]
  - EAR PAIN [None]
  - GASTRITIS [None]
  - LIPIDOSIS [None]
  - MUSCULOSKELETAL CHEST PAIN [None]
  - OEDEMA [None]
  - PANCREATITIS ACUTE [None]
  - RHINORRHOEA [None]
  - VAGINAL ODOUR [None]
